FAERS Safety Report 13882918 (Version 1)
Quarter: 2017Q3

REPORT INFORMATION
  Report Type: Spontaneous
  Country: FR (occurrence: FR)
  Receive Date: 20170818
  Receipt Date: 20170818
  Transmission Date: 20171127
  Serious: Yes (Hospitalization)
  Sender: FDA-Public Use
  Company Number: FR-SA-2017SA149926

PATIENT
  Age: 28 Year
  Sex: Male

DRUGS (8)
  1. IFOSFAMIDE. [Concomitant]
     Active Substance: IFOSFAMIDE
     Route: 065
     Dates: start: 201707
  2. ZARZIO [Suspect]
     Active Substance: FILGRASTIM
     Indication: CYTAPHERESIS
     Route: 058
     Dates: start: 20170720, end: 20170726
  3. INEXIUM [Concomitant]
     Active Substance: ESOMEPRAZOLE
     Route: 065
  4. CARBOPLATIN. [Concomitant]
     Active Substance: CARBOPLATIN
     Route: 065
     Dates: start: 201707
  5. TAXOL [Concomitant]
     Active Substance: PACLITAXEL
     Route: 065
     Dates: start: 201707
  6. MOZOBIL [Suspect]
     Active Substance: PLERIXAFOR
     Indication: HAEMATOPOIETIC STEM CELL MOBILISATION
     Route: 058
     Dates: start: 20170724, end: 20170724
  7. ETOPOSIDE. [Concomitant]
     Active Substance: ETOPOSIDE
     Route: 065
  8. LOVENOX [Concomitant]
     Active Substance: ENOXAPARIN SODIUM
     Route: 065

REACTIONS (1)
  - Seizure [Recovered/Resolved]

NARRATIVE: CASE EVENT DATE: 20170726
